FAERS Safety Report 10924754 (Version 2)
Quarter: 2015Q2

REPORT INFORMATION
  Report Type: Spontaneous
  Country: US (occurrence: US)
  Receive Date: 20150318
  Receipt Date: 20150524
  Transmission Date: 20150821
  Serious: No
  Sender: FDA-Public Use
  Company Number: US-JNJFOC-20131104690

PATIENT
  Age: 76 Year
  Sex: Female
  Weight: 59.88 kg

DRUGS (4)
  1. NIZORAL A-D [Suspect]
     Active Substance: KETOCONAZOLE
     Route: 061
  2. HIGH CHOLESTEROL MEDICATION [Concomitant]
     Active Substance: UNSPECIFIED INGREDIENT
     Indication: BLOOD CHOLESTEROL
     Route: 065
  3. NIZORAL A-D [Suspect]
     Active Substance: KETOCONAZOLE
     Indication: DANDRUFF
     Dosage: AMOUNT NEEDED FOR HER HAIR
     Route: 061
  4. HIGH BLOOD PRESSURE MEDICATION, NOS [Concomitant]
     Indication: HYPERTENSION
     Route: 065

REACTIONS (1)
  - Alopecia [Not Recovered/Not Resolved]
